FAERS Safety Report 6987592-3 (Version None)
Quarter: 2010Q3

REPORT INFORMATION
  Report Type: 
  Country: None (occurrence: None)
  Receive Date: 20100914
  Receipt Date: 20100908
  Transmission Date: 20110219
  Serious: Yes (Hospitalization)
  Sender: FDA-Public Use
  Company Number: 669168

PATIENT
  Sex: Male

DRUGS (2)
  1. CIPROFLOXACIN [Suspect]
     Indication: GASTROENTERITIS
     Dosage: INTRAVENOUS
     Route: 042
  2. CIPROFLOXACIN [Suspect]
     Indication: GASTROENTERITIS
     Dosage: ORAL
     Route: 048

REACTIONS (4)
  - COLECTOMY [None]
  - DEHYDRATION [None]
  - SPLENECTOMY [None]
  - WEIGHT DECREASED [None]
